FAERS Safety Report 8057515-7 (Version None)
Quarter: 2012Q1

REPORT INFORMATION
  Report Type: 
  Country: None (occurrence: None)
  Receive Date: 20120119
  Receipt Date: 20120110
  Transmission Date: 20120608
  Serious: Yes (Hospitalization)
  Sender: FDA-Public Use
  Company Number: BR-ASTRAZENECA-2012SE02192

PATIENT
  Age: 56 Year
  Sex: Male
  Weight: 80 kg

DRUGS (3)
  1. ATACAND [Suspect]
     Indication: HYPERTENSION
     Route: 048
     Dates: start: 20080101
  2. BRILINTA [Suspect]
     Indication: ARTERIAL OCCLUSIVE DISEASE
     Route: 048
     Dates: start: 20120102
  3. LIPITOR [Suspect]
     Indication: BLOOD CHOLESTEROL INCREASED
     Route: 048
     Dates: start: 20110401

REACTIONS (2)
  - OFF LABEL USE [None]
  - ARTERIAL OCCLUSIVE DISEASE [None]
